FAERS Safety Report 5249286-4 (Version None)
Quarter: 2007Q1

REPORT INFORMATION
  Report Type: 
  Country: None (occurrence: None)
  Receive Date: 20070223
  Receipt Date: 20070202
  Transmission Date: 20070707
  Serious: Yes (Death)
  Sender: FDA-Public Use
  Company Number: 236630

PATIENT
  Age: 57 Year
  Sex: Female

DRUGS (1)
  1. AVASTIN [Suspect]
     Indication: BREAST CANCER METASTATIC
     Dates: start: 20050615

REACTIONS (3)
  - BREAST CANCER METASTATIC [None]
  - HAEMANGIOMA [None]
  - MALIGNANT NEOPLASM PROGRESSION [None]
